FAERS Safety Report 11665838 (Version 1)
Quarter: 2015Q4

REPORT INFORMATION
  Report Type: Spontaneous
  Country: US (occurrence: US)
  Receive Date: 20151027
  Receipt Date: 20151027
  Transmission Date: 20160304
  Serious: No
  Sender: FDA-Public Use
  Company Number: US-ELI_LILLY_AND_COMPANY-US201001003273

PATIENT
  Age: 83 Year
  Sex: Female

DRUGS (17)
  1. NEXIUM [Concomitant]
     Active Substance: ESOMEPRAZOLE MAGNESIUM
     Dosage: 20 MG, DAILY (1/D)
  2. CALCIUM [Concomitant]
     Active Substance: CALCIUM
     Dosage: 600 MG, 2/D
  3. DIOVAN HCT [Concomitant]
     Active Substance: HYDROCHLOROTHIAZIDE\VALSARTAN
     Dosage: UNK, UNKNOWN
  4. OMEGA 3 FISH OIL [Concomitant]
     Active Substance: FISH OIL\OMEGA-3 FATTY ACIDS
     Dosage: 1200 MG, UNKNOWN
  5. CETRIZINE [Concomitant]
     Active Substance: CETIRIZINE HYDROCHLORIDE
     Dosage: 10 MG, UNKNOWN
  6. VITAMIN B COMPLEX [Concomitant]
     Active Substance: CYANOCOBALAMIN\DEXPANTHENOL\NIACINAMIDE\PYRIDOXINE HYDROCHLORIDE\RIBOFLAVIN 5^-PHOSPHATE SODIUM\THIAMINE HYDROCHLORIDE\VITAMIN B COMPLEX
     Dosage: UNK, UNKNOWN
  7. CLONAZEPAM. [Concomitant]
     Active Substance: CLONAZEPAM
     Dosage: 1 MG, UNKNOWN
  8. VITAMINS [Concomitant]
     Active Substance: VITAMINS
     Dosage: UNK, DAILY (1/D)
  9. LYRICA [Concomitant]
     Active Substance: PREGABALIN
     Dosage: 75 MG, UNKNOWN
  10. HYDROCHLOROTHIAZIDE. [Concomitant]
     Active Substance: HYDROCHLOROTHIAZIDE
     Dosage: 12.5 MG, UNKNOWN
  11. OXYCODONE [Concomitant]
     Active Substance: OXYCODONE
     Dosage: 0.5 D/F, 2/M
  12. CICLESONIDE [Concomitant]
     Active Substance: CICLESONIDE
     Dosage: 50 MG, UNKNOWN
  13. SIMVASTATIN. [Concomitant]
     Active Substance: SIMVASTATIN
     Dosage: 40 MG, UNKNOWN
  14. GLUCOSAMINE SULFATE W/CHONDROITIN [Concomitant]
     Dosage: UNK, 2/D
  15. VITAMIN D3 [Concomitant]
     Active Substance: CHOLECALCIFEROL
     Dosage: 1000 MG, UNKNOWN
  16. FORTEO [Suspect]
     Active Substance: TERIPARATIDE
     Indication: OSTEOPOROSIS
     Dosage: 20 UG, DAILY (1/D)
     Dates: start: 200905
  17. MUCONEX [Concomitant]
     Dosage: UNK, WEEKLY (1/W)

REACTIONS (10)
  - Arthralgia [Not Recovered/Not Resolved]
  - Drug dose omission [Unknown]
  - Exercise electrocardiogram abnormal [Not Recovered/Not Resolved]
  - Arthritis [Not Recovered/Not Resolved]
  - Dyspnoea [Not Recovered/Not Resolved]
  - Chest pain [Not Recovered/Not Resolved]
  - Anger [Unknown]
  - Medication error [Unknown]
  - Renal impairment [Unknown]
  - Muscle spasms [Unknown]

NARRATIVE: CASE EVENT DATE: 2009
